FAERS Safety Report 8493701-X (Version None)
Quarter: 2012Q3

REPORT INFORMATION
  Report Type: 
  Country: None (occurrence: None)
  Receive Date: 20120706
  Receipt Date: 20120627
  Transmission Date: 20120928
  Serious: Yes (Hospitalization, Disabling, Other)
  Sender: FDA-Public Use
  Company Number: US-ABBOTT-12P-163-0950345-00

PATIENT
  Sex: Female

DRUGS (3)
  1. PREDNISONE [Concomitant]
     Indication: PRODUCT USED FOR UNKNOWN INDICATION
  2. HUMIRA [Suspect]
     Indication: PRODUCT USED FOR UNKNOWN INDICATION
  3. METHOTREXATE [Concomitant]
     Indication: PRODUCT USED FOR UNKNOWN INDICATION

REACTIONS (12)
  - SEXUAL DYSFUNCTION [None]
  - AMNESIA [None]
  - CONFUSIONAL STATE [None]
  - PAIN [None]
  - PARTNER STRESS [None]
  - TOXIC ENCEPHALOPATHY [None]
  - EMOTIONAL DISTRESS [None]
  - ENCEPHALITIS HERPES [None]
  - ANXIETY [None]
  - MENINGITIS [None]
  - DISABILITY [None]
  - DEPRESSION [None]
